FAERS Safety Report 14458540 (Version 1)
Quarter: 2018Q1

REPORT INFORMATION
  Report Type: Spontaneous
  Country: US (occurrence: US)
  Receive Date: 20180130
  Receipt Date: 20180130
  Transmission Date: 20180509
  Serious: No
  Sender: FDA-Public Use
  Company Number: US-TEVA-2018-US-844436

PATIENT
  Sex: Female
  Weight: 78 kg

DRUGS (2)
  1. PARAGARD T 380A [Suspect]
     Active Substance: COPPER
     Indication: CONTRACEPTION
     Route: 065
     Dates: start: 20171103
  2. BETAMETHASONE. [Concomitant]
     Active Substance: BETAMETHASONE
     Indication: VULVAL DISORDER

REACTIONS (1)
  - Therapy cessation [Recovered/Resolved]
